FAERS Safety Report 25465870 (Version 1)
Quarter: 2025Q2

REPORT INFORMATION
  Report Type: Spontaneous
  Country: DE (occurrence: DE)
  Receive Date: 20250623
  Receipt Date: 20250623
  Transmission Date: 20250717
  Serious: Yes (Hospitalization, Other)
  Sender: ACCORD
  Company Number: None

PATIENT
  Age: 51 Year
  Sex: Male
  Weight: 85 kg

DRUGS (2)
  1. OXALIPLATIN [Suspect]
     Active Substance: OXALIPLATIN
     Indication: Colorectal cancer
     Dates: start: 20250318
  2. OXALIPLATIN [Suspect]
     Active Substance: OXALIPLATIN
     Indication: Colorectal cancer
     Dates: start: 20250410

REACTIONS (7)
  - Malaise [Unknown]
  - Anaphylactic shock [Unknown]
  - Hyperhidrosis [Unknown]
  - Hypotension [Unknown]
  - Oxygen saturation decreased [Unknown]
  - Somnolence [Unknown]
  - Flushing [Unknown]

NARRATIVE: CASE EVENT DATE: 20250318
